FAERS Safety Report 18949638 (Version 1)
Quarter: 2021Q1

REPORT INFORMATION
  Report Type: Spontaneous
  Country: US (occurrence: US)
  Receive Date: 20210227
  Receipt Date: 20210227
  Transmission Date: 20210420
  Serious: No
  Sender: FDA-Public Use
  Company Number: US-ROCHE-2601277

PATIENT
  Sex: Male

DRUGS (1)
  1. XOLAIR [Suspect]
     Active Substance: OMALIZUMAB
     Indication: IDIOPATHIC URTICARIA
     Dosage: STRENGTH 150 MG/ML.
     Route: 058
     Dates: start: 20200331

REACTIONS (2)
  - Drug ineffective [Unknown]
  - Urticaria [Not Recovered/Not Resolved]
